FAERS Safety Report 9438979 (Version 1)
Quarter: 2013Q3

REPORT INFORMATION
  Report Type: Spontaneous
  Country: JP (occurrence: JP)
  Receive Date: 20130802
  Receipt Date: 20130802
  Transmission Date: 20140515
  Serious: Yes (Death, Other)
  Sender: FDA-Public Use
  Company Number: PHHY2013JP081540

PATIENT
  Age: 57 Year
  Sex: Female

DRUGS (5)
  1. ETOPOSIDE [Suspect]
     Indication: CHEMOTHERAPY
     Dosage: 100 MG, UNK
  2. DOXORUBICIN HYDROCHLORIDE [Suspect]
     Indication: CHEMOTHERAPY
  3. VINCRISTINE SULFATE [Suspect]
     Indication: CHEMOTHERAPY
  4. PREDNISOLONE [Suspect]
     Indication: CHEMOTHERAPY
  5. CYCLOPHOSPHAMIDE [Suspect]
     Indication: CHEMOTHERAPY

REACTIONS (4)
  - Septic shock [Fatal]
  - Splenomegaly [Unknown]
  - Candida infection [Unknown]
  - Febrile neutropenia [Unknown]
